FAERS Safety Report 15730095 (Version 1)
Quarter: 2018Q4

REPORT INFORMATION
  Report Type: Spontaneous
  Country: US (occurrence: US)
  Receive Date: 20181217
  Receipt Date: 20181217
  Transmission Date: 20190205
  Serious: Yes (Other)
  Sender: FDA-Public Use
  Company Number: US-SA-2017SA250938

PATIENT
  Age: 37 Year
  Sex: Female
  Weight: 72.57 kg

DRUGS (11)
  1. DECADRON [DEXAMETHASONE] [Concomitant]
  2. ZANTAC [Concomitant]
     Active Substance: RANITIDINE HYDROCHLORIDE
  3. ADRIAMYCIN [Concomitant]
     Active Substance: DOXORUBICIN HYDROCHLORIDE
     Dosage: UNK UNK,UNK
     Route: 065
  4. NEOSAR [Concomitant]
     Active Substance: CYCLOPHOSPHAMIDE
     Route: 065
  5. DOXYCYCLINE HYDROCHLORIDE [Concomitant]
     Active Substance: DOXYCYCLINE HYDROCHLORIDE
  6. TAXOTERE [Suspect]
     Active Substance: DOCETAXEL
     Dosage: 140 MG, Q3W
     Route: 042
     Dates: start: 20091001, end: 20091001
  7. DIETHYLPROPION HYDROCHLORIDE. [Concomitant]
     Active Substance: DIETHYLPROPION HYDROCHLORIDE
     Dosage: UNK UNK,UNK
     Route: 065
     Dates: start: 2002, end: 2007
  8. BENADRYL [Concomitant]
     Active Substance: DIPHENHYDRAMINE HYDROCHLORIDE
  9. TAXOTERE [Suspect]
     Active Substance: DOCETAXEL
     Indication: BREAST CANCER FEMALE
     Dosage: 140 MG, Q3W
     Route: 042
     Dates: start: 20090720, end: 20090720
  10. COMPAZINE [Concomitant]
     Active Substance: PROCHLORPERAZINE MALEATE
  11. ATIVAN [Concomitant]
     Active Substance: LORAZEPAM

REACTIONS (6)
  - Emotional distress [Unknown]
  - Pain [Unknown]
  - Anxiety [Unknown]
  - Alopecia [Recovering/Resolving]
  - Impaired quality of life [Unknown]
  - Psychological trauma [Unknown]
